FAERS Safety Report 21081965 (Version 8)
Quarter: 2022Q3

REPORT INFORMATION
  Report Type: Report from Study
  Country: FR (occurrence: None)
  Receive Date: 20220714
  Receipt Date: 20220921
  Transmission Date: 20221026
  Serious: Yes (Hospitalization)
  Sender: FDA-Public Use
  Company Number: FR-ROCHE-3118035

PATIENT
  Age: 59 Year
  Sex: Female
  Weight: 124 kg

DRUGS (5)
  1. ATEZOLIZUMAB [Suspect]
     Active Substance: ATEZOLIZUMAB
     Indication: Squamous cell carcinoma of the cervix
     Dosage: ON 10/JUN/2022, LAST DOSE OF ATEZOLIZUMAB ADMINISTRATION BEFORE SAE 1200 MG?ON 19/JUL/2022, LAST DOS
     Route: 041
     Dates: start: 20220610, end: 20220610
  2. ATEZOLIZUMAB [Suspect]
     Active Substance: ATEZOLIZUMAB
     Indication: Neoplasm
  3. INVESTIGATIONAL PRODUCT [Suspect]
     Active Substance: INVESTIGATIONAL PRODUCT
     Indication: Squamous cell carcinoma of the cervix
     Dosage: ON 10/JUN/2022, LAST DOSE OF BDB 001 BEFORE SAE 4.5 MG?ON 17/JUN/2022, LAST DOSE OF BDB 001 BEFORE S
     Route: 042
     Dates: start: 20220610, end: 20220624
  4. LYRICA [Concomitant]
     Active Substance: PREGABALIN
     Indication: Anxiety
     Route: 048
  5. IRBESARTAN [Concomitant]
     Active Substance: IRBESARTAN
     Indication: Hypertension
     Route: 048

REACTIONS (5)
  - Cytokine release syndrome [Recovered/Resolved with Sequelae]
  - Cytokine release syndrome [Recovered/Resolved]
  - Hypercalcaemia [Recovered/Resolved]
  - Pyrexia [Not Recovered/Not Resolved]
  - Cystitis [Recovered/Resolved]

NARRATIVE: CASE EVENT DATE: 20220610
